FAERS Safety Report 6146945-6 (Version None)
Quarter: 2009Q2

REPORT INFORMATION
  Report Type: 
  Country: None (occurrence: None)
  Receive Date: 20090407
  Receipt Date: 20090331
  Transmission Date: 20091009
  Serious: Yes (Other)
  Sender: FDA-Public Use
  Company Number: US-JNJCH-2009009028

PATIENT
  Age: 42 Year
  Sex: Male
  Weight: 79.4 kg

DRUGS (1)
  1. LISTERINE WHITENING QUICK DISSOLVING STRIPS [Suspect]
     Indication: DENTAL CARE
     Dosage: TEXT:AS DIRECTED ONE TIME
     Route: 048

REACTIONS (2)
  - EXPIRED DRUG ADMINISTERED [None]
  - TOOTH DISORDER [None]
